FAERS Safety Report 14258299 (Version 1)
Quarter: 2017Q4

REPORT INFORMATION
  Report Type: Spontaneous
  Country: US (occurrence: US)
  Receive Date: 20171206
  Receipt Date: 20171206
  Transmission Date: 20180321
  Serious: Yes (Disabling, Other)
  Sender: FDA-Public Use
  Company Number: None

PATIENT
  Age: 38 Year
  Sex: Female
  Weight: 58.5 kg

DRUGS (12)
  1. VITAMIN C [Concomitant]
     Active Substance: ASCORBIC ACID
  2. VALERIAN [Concomitant]
     Active Substance: VALERIAN
  3. HYDROCORTISONE. [Suspect]
     Active Substance: HYDROCORTISONE
     Indication: ECZEMA
     Route: 061
  4. VIT A [Concomitant]
  5. COLLAGEN [Concomitant]
     Active Substance: COLLAGEN
  6. ZINC. [Concomitant]
     Active Substance: ZINC
  7. CHLORELLA [Concomitant]
  8. MILK THISTLE [Concomitant]
     Active Substance: DIETARY SUPPLEMENT\HERBALS\MILK THISTLE
  9. B VITAMINS [Concomitant]
     Active Substance: CYANOCOBALAMIN\DEXPANTHENOL\NIACINAMIDE\PYRIDOXINE HYDROCHLORIDE\RIBOFLAVIN 5^-PHOSPHATE SODIUM\THIAMINE HYDROCHLORIDE\VITAMIN B COMPLEX
  10. VITAMIN D [Concomitant]
     Active Substance: CHOLECALCIFEROL
  11. GLUTAMINE [Concomitant]
     Active Substance: GLUTAMINE
  12. D-HIST (NETTLE, QUERCERTIN, VIT C) [Concomitant]

REACTIONS (7)
  - Pruritus [None]
  - Erythema [None]
  - Skin atrophy [None]
  - Rash [None]
  - Urticaria [None]
  - Skin exfoliation [None]
  - Skin disorder [None]
